FAERS Safety Report 12921307 (Version 4)
Quarter: 2017Q1

REPORT INFORMATION
  Report Type: Report from Study
  Country: US (occurrence: US)
  Receive Date: 20161107
  Receipt Date: 20170203
  Transmission Date: 20170428
  Serious: Yes (Hospitalization, Other)
  Sender: FDA-Public Use
  Company Number: US-BAYER-2016-210889

PATIENT
  Age: 65 Year
  Sex: Male

DRUGS (2)
  1. STIVARGA [Suspect]
     Active Substance: REGORAFENIB
     Indication: COLORECTAL CANCER
     Dosage: 160 MG DAILY
     Route: 048
     Dates: start: 20161020, end: 20161101
  2. STIVARGA [Suspect]
     Active Substance: REGORAFENIB
     Indication: COLON CANCER METASTATIC

REACTIONS (11)
  - Drug ineffective [None]
  - Burning sensation [None]
  - Lethargy [None]
  - Gait disturbance [None]
  - Asthenia [None]
  - Musculoskeletal pain [None]
  - Dysphonia [None]
  - Metastases to bone [None]
  - Drug intolerance [None]
  - Dysstasia [None]
  - Condition aggravated [Not Recovered/Not Resolved]

NARRATIVE: CASE EVENT DATE: 2016
